FAERS Safety Report 11521704 (Version 1)
Quarter: 2015Q3

REPORT INFORMATION
  Report Type: Spontaneous
  Country: US (occurrence: US)
  Receive Date: 20150918
  Receipt Date: 20150918
  Transmission Date: 20151125
  Serious: No
  Sender: FDA-Public Use
  Company Number: US-ROCHE-755927

PATIENT
  Sex: Male

DRUGS (1)
  1. PEGASYS [Suspect]
     Active Substance: PEGINTERFERON ALFA-2A
     Indication: PRODUCT USED FOR UNKNOWN INDICATION
     Dosage: PEGASYS SHOT
     Route: 065

REACTIONS (6)
  - Feeling hot [Unknown]
  - Pain [Unknown]
  - Tremor [Unknown]
  - Nasopharyngitis [Unknown]
  - Insomnia [Unknown]
  - Chills [Unknown]
